FAERS Safety Report 4893111-8 (Version None)
Quarter: 2005Q4

REPORT INFORMATION
  Report Type: 
  Country: None (occurrence: None)
  Receive Date: 20051220
  Receipt Date: 20050526
  Transmission Date: 20060501
  Serious: No
  Sender: FDA-Public Use
  Company Number: 200511065BWH

PATIENT
  Sex: Male

DRUGS (1)
  1. TRASYLOL [Suspect]

REACTIONS (1)
  - ACCIDENTAL EXPOSURE [None]
